FAERS Safety Report 9535428 (Version 2)
Quarter: 2013Q3

REPORT INFORMATION
  Report Type: Spontaneous
  Country: BR (occurrence: BR)
  Receive Date: 20130918
  Receipt Date: 20130918
  Transmission Date: 20140515
  Serious: Yes (Other)
  Sender: FDA-Public Use
  Company Number: BR-CUBIST PHARMACEUTICAL, INC.-2013CBST000667

PATIENT
  Sex: 0

DRUGS (3)
  1. CUBICIN [Suspect]
     Indication: ENDOCARDITIS
     Dosage: 500 MG, UNK
     Route: 042
     Dates: start: 20130621, end: 20130624
  2. CUBICIN [Suspect]
     Dosage: 6 MG/KG, ONCE DAILY
     Route: 042
     Dates: start: 20130726, end: 20130728
  3. VANCOMYCIN [Concomitant]
     Indication: PRODUCT USED FOR UNKNOWN INDICATION
     Dosage: UNK UNK, UNK
     Route: 065
     Dates: start: 20130624

REACTIONS (1)
  - Myoclonus [Recovered/Resolved]
